FAERS Safety Report 23927731 (Version 1)
Quarter: 2024Q2

REPORT INFORMATION
  Report Type: Spontaneous
  Country: US (occurrence: US)
  Receive Date: 20240531
  Receipt Date: 20240531
  Transmission Date: 20240716
  Serious: Yes (Hospitalization, Other)
  Sender: FDA-Public Use
  Company Number: US-SAKK-2024SA157428AA

PATIENT
  Age: 77 Year
  Sex: Female

DRUGS (3)
  1. CEMIPLIMAB [Suspect]
     Active Substance: CEMIPLIMAB
     Indication: Squamous cell carcinoma of skin
     Dosage: THREE CYCLES, DOSED MONTHLY DUE TO PERSISTENT DIARRHEA
     Route: 042
  2. PREDNISONE [Concomitant]
     Active Substance: PREDNISONE
     Indication: Diarrhoea
     Route: 065
  3. INFLIXIMAB [Concomitant]
     Active Substance: INFLIXIMAB
     Indication: Diarrhoea
     Route: 065

REACTIONS (18)
  - Hyperglycaemic hyperosmolar nonketotic syndrome [Recovered/Resolved]
  - Dehydration [Recovered/Resolved]
  - Hyperglycaemia [Recovered/Resolved]
  - Hyperosmolar state [Recovered/Resolved]
  - Acute kidney injury [Recovered/Resolved]
  - Hyperlactacidaemia [Recovered/Resolved]
  - Atrial fibrillation [Recovering/Resolving]
  - Tachypnoea [Recovering/Resolving]
  - Diabetic ketoacidosis [Recovered/Resolved]
  - Mental status changes [Recovered/Resolved]
  - Lethargy [Recovered/Resolved]
  - Decreased appetite [Recovered/Resolved]
  - Weight decreased [Recovered/Resolved]
  - Nausea [Recovered/Resolved]
  - Vomiting [Recovered/Resolved]
  - Abdominal pain [Recovered/Resolved]
  - Dizziness [Recovered/Resolved]
  - Sinusitis [Unknown]
